FAERS Safety Report 8131739-2 (Version None)
Quarter: 2012Q1

REPORT INFORMATION
  Report Type: 
  Country: None (occurrence: None)
  Receive Date: 20120213
  Receipt Date: 20120201
  Transmission Date: 20120608
  Serious: No
  Sender: FDA-Public Use
  Company Number: US-PFIZER INC-2012028644

PATIENT
  Sex: Female

DRUGS (2)
  1. METOPROLOL [Concomitant]
     Indication: BLOOD PRESSURE ABNORMAL
     Dosage: UNK
  2. CELEBREX [Suspect]
     Dosage: UNK
     Route: 048
     Dates: start: 20110101

REACTIONS (3)
  - POOR QUALITY DRUG ADMINISTERED [None]
  - HYPERTENSION [None]
  - DRUG DOSE OMISSION [None]
